FAERS Safety Report 7045061-9 (Version None)
Quarter: 2010Q4

REPORT INFORMATION
  Report Type: 
  Country: None (occurrence: None)
  Receive Date: 20101013
  Receipt Date: 20101013
  Transmission Date: 20110411
  Serious: Yes (Other)
  Sender: FDA-Public Use
  Company Number: None

PATIENT
  Sex: Female
  Weight: 55.7924 kg

DRUGS (2)
  1. LOVAZA [Suspect]
     Indication: ARTHRITIS
     Dosage: 2 CAPSULES TWICE DAILY PO TEMPORARILY DISCONTINUED
     Route: 048
     Dates: start: 20100615, end: 20101006
  2. LOVAZA [Suspect]
     Indication: BLOOD TRIGLYCERIDES INCREASED
     Dosage: 2 CAPSULES TWICE DAILY PO TEMPORARILY DISCONTINUED
     Route: 048
     Dates: start: 20100615, end: 20101006

REACTIONS (8)
  - ABDOMINAL DISTENSION [None]
  - CARDIAC DISORDER [None]
  - CHEST PAIN [None]
  - DIZZINESS [None]
  - GASTRITIS [None]
  - INCREASED APPETITE [None]
  - MALAISE [None]
  - OEDEMA PERIPHERAL [None]
